FAERS Safety Report 17412444 (Version 2)
Quarter: 2020Q3

REPORT INFORMATION
  Report Type: Spontaneous
  Country: ES (occurrence: ES)
  Receive Date: 20200213
  Receipt Date: 20200915
  Transmission Date: 20201102
  Serious: Yes (Life-Threatening, Other)
  Sender: FDA-Public Use
  Company Number: ES-AUROBINDO-AUR-APL-2020-006916

PATIENT
  Age: 66 Year
  Sex: Male

DRUGS (6)
  1. LOSARTAN. [Concomitant]
     Active Substance: LOSARTAN
     Indication: PRODUCT USED FOR UNKNOWN INDICATION
     Dosage: 0.5 DOSAGE FORM, ONCE A DAY
     Route: 065
  2. BISOPROLOL [Concomitant]
     Active Substance: BISOPROLOL
     Dosage: INCREASED TO 2.5 MG TO MEDIUM EVERY 12 H
     Route: 065
  3. AMIODARONE 200 MG TABLET [Suspect]
     Active Substance: AMIODARONE
     Indication: ATRIAL FIBRILLATION
     Dosage: 200 MILLIGRAM (5 TABLETS EVERY WEEK)
     Route: 065
  4. ACENOCOUMAROL [Concomitant]
     Active Substance: ACENOCOUMAROL
     Indication: PRODUCT USED FOR UNKNOWN INDICATION
     Dosage: 4 MILLIGRAM (1 DOSAGE FORM,AS NECESSARY)
     Route: 065
  5. AMIODARONE 200 MG TABLET [Suspect]
     Active Substance: AMIODARONE
     Dosage: 2 DOSAGE FORM, EVERY WEEK
     Route: 065
  6. BISOPROLOL [Concomitant]
     Active Substance: BISOPROLOL
     Indication: ATRIAL FIBRILLATION
     Dosage: 0.5 DOSAGE FORM, ONCE A DAY
     Route: 065

REACTIONS (4)
  - Hyperthyroidism [Recovered/Resolved]
  - Toxicity to various agents [Recovered/Resolved]
  - Thyroiditis [Recovered/Resolved]
  - Atrioventricular block first degree [Recovered/Resolved]
